FAERS Safety Report 18138309 (Version 1)
Quarter: 2020Q3

REPORT INFORMATION
  Report Type: Spontaneous
  Country: JP (occurrence: JP)
  Receive Date: 20200812
  Receipt Date: 20200812
  Transmission Date: 20201103
  Serious: Yes (Other)
  Sender: FDA-Public Use
  Company Number: JP-SA-2020SA205483

PATIENT

DRUGS (5)
  1. BUCILLAMINE [Concomitant]
     Active Substance: BUCILLAMINE
     Dosage: 300MG/DAY
     Route: 065
  2. KEVZARA [Suspect]
     Active Substance: SARILUMAB
     Indication: RHEUMATIC DISORDER
     Dosage: 200 MG, QOW
     Route: 058
     Dates: start: 20200601, end: 20200730
  3. METHOTREXATE. [Concomitant]
     Active Substance: METHOTREXATE
     Indication: RHEUMATIC DISORDER
     Dosage: 6 MG, QW
     Route: 065
     Dates: start: 202002
  4. METHOTREXATE. [Concomitant]
     Active Substance: METHOTREXATE
     Dosage: 8 MG, QW
     Route: 065
     Dates: start: 202005
  5. BUCILLAMINE [Concomitant]
     Active Substance: BUCILLAMINE
     Indication: RHEUMATIC DISORDER
     Dosage: 200MG/DAY
     Route: 065

REACTIONS (2)
  - Anaemia [Unknown]
  - Melaena [Unknown]

NARRATIVE: CASE EVENT DATE: 20200618
